FAERS Safety Report 11009449 (Version 1)
Quarter: 2015Q2

REPORT INFORMATION
  Report Type: Spontaneous
  Country: US (occurrence: None)
  Receive Date: 20150409
  Receipt Date: 20150409
  Transmission Date: 20150821
  Serious: Yes (Disabling)
  Sender: FDA-Public Use
  Company Number: None

PATIENT
  Age: 70 Year
  Sex: Female
  Weight: 68.49 kg

DRUGS (10)
  1. ESTRING VAGINAL RING [Concomitant]
  2. MULTIVIT [Concomitant]
     Active Substance: VITAMINS
  3. LEVOFLOXACIN. [Suspect]
     Active Substance: LEVOFLOXACIN
     Indication: SINUSITIS
     Route: 048
     Dates: start: 20141224, end: 20150107
  4. 1/2 DOXYLAMINE SUCCINATE AT BEDTIME [Concomitant]
  5. CALCIUM [Concomitant]
     Active Substance: CALCIUM
  6. LEVOFLOXACIN. [Suspect]
     Active Substance: LEVOFLOXACIN
     Indication: FUNGAL INFECTION
     Route: 048
     Dates: start: 20141224, end: 20150107
  7. SYNTHROID [Concomitant]
     Active Substance: LEVOTHYROXINE SODIUM
  8. ASPIRIN BABY AT PM [Concomitant]
  9. CLARITIN [Concomitant]
     Active Substance: LORATADINE
  10. TUMERIC [Concomitant]

REACTIONS (4)
  - Tendon disorder [None]
  - Exercise tolerance decreased [None]
  - Headache [None]
  - Muscular weakness [None]
